FAERS Safety Report 20581941 (Version 7)
Quarter: 2023Q1

REPORT INFORMATION
  Report Type: Report from Study
  Country: US (occurrence: US)
  Receive Date: 20220311
  Receipt Date: 20230224
  Transmission Date: 20230418
  Serious: Yes (Death, Hospitalization, Other)
  Sender: FDA-Public Use
  Company Number: US-TAKEDA-2021TUS077516

PATIENT
  Sex: Male
  Weight: 15 kg

DRUGS (16)
  1. HUMAN IMMUNOGLOBULIN G [Suspect]
     Active Substance: HUMAN IMMUNOGLOBULIN G
     Indication: DiGeorge^s syndrome
     Dosage: 5 GRAM, 1/WEEK
     Route: 058
     Dates: start: 20211113
  2. HUMAN IMMUNOGLOBULIN G [Suspect]
     Active Substance: HUMAN IMMUNOGLOBULIN G
     Indication: Immunodeficiency common variable
     Dosage: 5 GRAM, 1/WEEK
     Route: 058
     Dates: start: 20211115
  3. HUMAN IMMUNOGLOBULIN G [Suspect]
     Active Substance: HUMAN IMMUNOGLOBULIN G
     Indication: Epilepsy
     Dosage: 5 GRAM, 1/WEEK
     Route: 058
     Dates: start: 20211117
  4. HUMAN IMMUNOGLOBULIN G [Suspect]
     Active Substance: HUMAN IMMUNOGLOBULIN G
     Indication: Evans syndrome
     Dosage: 5 GRAM, 1/WEEK
     Route: 058
     Dates: start: 20220614
  5. HUMAN IMMUNOGLOBULIN G [Suspect]
     Active Substance: HUMAN IMMUNOGLOBULIN G
     Indication: Blood disorder
  6. DIPHENHYDRAMINE [Concomitant]
     Active Substance: DIPHENHYDRAMINE
  7. EPINEPHRINE [Concomitant]
     Active Substance: EPINEPHRINE
  8. PEPCID [Concomitant]
     Active Substance: FAMOTIDINE
  9. EPOGEN [Concomitant]
     Active Substance: ERYTHROPOIETIN
  10. IRON [Concomitant]
     Active Substance: IRON
  11. ACETAMINOPHEN [Concomitant]
     Active Substance: ACETAMINOPHEN
  12. OMNITROPE [Concomitant]
     Active Substance: SOMATROPIN
  13. AZITHROMYCIN [Concomitant]
     Active Substance: AZITHROMYCIN
  14. PROMACTA [Concomitant]
     Active Substance: ELTROMBOPAG OLAMINE
  15. LIDOCAINE [Concomitant]
     Active Substance: LIDOCAINE
  16. AMOXICILLIN [Concomitant]
     Active Substance: AMOXICILLIN

REACTIONS (7)
  - Death [Fatal]
  - Intra-abdominal fluid collection [Unknown]
  - Blood albumin decreased [Unknown]
  - Device related infection [Unknown]
  - Staphylococcal infection [Unknown]
  - Infusion site extravasation [Unknown]
  - Off label use [Unknown]
